FAERS Safety Report 8226491-6 (Version None)
Quarter: 2012Q1

REPORT INFORMATION
  Report Type: 
  Country: None (occurrence: None)
  Receive Date: 20120322
  Receipt Date: 20120316
  Transmission Date: 20120608
  Serious: Yes (Hospitalization)
  Sender: FDA-Public Use
  Company Number: ES-PAR PHARMACEUTICAL, INC-2012SCPR004267

PATIENT

DRUGS (2)
  1. ASCORBIC ACID, CODEINE, PARACETAMOL [Concomitant]
     Indication: INFLUENZA LIKE ILLNESS
     Dosage: 1-2 CAPSULES A DAY
     Route: 065
  2. IBUPROFEN TABLETS [Suspect]
     Indication: INFLUENZA LIKE ILLNESS
     Dosage: 600-1200 MG/ DAY
     Route: 065

REACTIONS (2)
  - TOXIC SKIN ERUPTION [None]
  - HEPATITIS CHOLESTATIC [None]
